FAERS Safety Report 6551719-8 (Version None)
Quarter: 2010Q1

REPORT INFORMATION
  Report Type: 
  Country: None (occurrence: None)
  Receive Date: 20100126
  Receipt Date: 20100120
  Transmission Date: 20100710
  Serious: Yes (Hospitalization)
  Sender: FDA-Public Use
  Company Number: US-ELI_LILLY_AND_COMPANY-US201001004565

PATIENT
  Sex: Male

DRUGS (13)
  1. HUMALOG [Suspect]
     Indication: DIABETES MELLITUS
     Dosage: 8 U, EACH MORNING
     Dates: start: 20090901
  2. HUMALOG [Suspect]
     Dosage: 6 U, OTHER
     Dates: start: 20090901
  3. HUMALOG [Suspect]
     Dosage: 4 U, EACH EVENING
     Dates: start: 20090901
  4. HUMALOG [Suspect]
     Dosage: 8 U, EACH MORNING
     Dates: start: 20090901
  5. HUMALOG [Suspect]
     Dosage: 6 U, OTHER
     Dates: start: 20090901
  6. HUMALOG [Suspect]
     Dosage: 4 U, EACH EVENING
     Dates: start: 20090901
  7. HUMALOG [Suspect]
     Dosage: 12 U, EACH MORNING
  8. HUMALOG [Suspect]
     Dosage: 6 U, OTHER
  9. HUMALOG [Suspect]
     Dosage: 12 U, EACH EVENING
  10. HUMALOG [Suspect]
     Dosage: 12 U, EACH MORNING
  11. HUMALOG [Suspect]
     Dosage: 6 U, OTHER
  12. HUMALOG [Suspect]
     Dosage: 12 U, EACH EVENING
  13. LANTUS [Concomitant]
     Dosage: 70 U, EACH EVENING

REACTIONS (2)
  - AORTIC VALVE REPLACEMENT [None]
  - BLOOD GLUCOSE INCREASED [None]
